FAERS Safety Report 5344355-2 (Version None)
Quarter: 2007Q2

REPORT INFORMATION
  Report Type: 
  Country: None (occurrence: None)
  Receive Date: 20070604
  Receipt Date: 20070529
  Transmission Date: 20071010
  Serious: Yes (Hospitalization)
  Sender: FDA-Public Use
  Company Number: US-ASTRAZENECA-2007UW13120

PATIENT
  Age: 72 Year
  Sex: Female

DRUGS (10)
  1. IRESSA [Suspect]
     Indication: TRANSITIONAL CELL CARCINOMA
     Route: 048
  2. TAXOTERE [Suspect]
     Indication: TRANSITIONAL CELL CARCINOMA
     Dosage: CYCLE 2
     Route: 042
     Dates: start: 20070412, end: 20070412
  3. TAXOTERE [Suspect]
     Dosage: CYCLE 2
     Route: 042
     Dates: start: 20070418, end: 20070418
  4. TAXOTERE [Suspect]
     Dosage: CYCLE 2
     Route: 042
     Dates: start: 20070428, end: 20070428
  5. ASPIRIN [Concomitant]
     Route: 048
  6. ATENOLOL [Concomitant]
     Route: 048
  7. LOTREL [Concomitant]
     Dosage: 5/40
  8. MULTI-VITAMIN [Concomitant]
  9. VICODIN [Concomitant]
  10. ARANESP [Concomitant]
     Dosage: EVERY OTHER WEEK

REACTIONS (1)
  - EMBOLISM [None]
